FAERS Safety Report 10412170 (Version 3)
Quarter: 2014Q3

REPORT INFORMATION
  Report Type: Spontaneous
  Country: IT (occurrence: IT)
  Receive Date: 20140827
  Receipt Date: 20140916
  Transmission Date: 20150326
  Serious: Yes (Other)
  Sender: FDA-Public Use
  Company Number: IT-RANBAXY-2014RR-84402

PATIENT
  Age: 56 Year
  Sex: Female

DRUGS (9)
  1. SEROXAT [Interacting]
     Active Substance: PAROXETINE HYDROCHLORIDE
     Indication: MAJOR DEPRESSION
  2. ZOLOFT [Suspect]
     Active Substance: SERTRALINE HYDROCHLORIDE
     Indication: MAJOR DEPRESSION
  3. SEROXAT [Interacting]
     Active Substance: PAROXETINE HYDROCHLORIDE
     Indication: OBSESSIVE-COMPULSIVE DISORDER
     Dosage: 60 MG, DAILY
     Route: 065
  4. ABILIFY [Suspect]
     Active Substance: ARIPIPRAZOLE
     Indication: OBSESSIVE-COMPULSIVE DISORDER
     Dosage: 5 MG, DAILY
     Route: 065
  5. ABILIFY [Interacting]
     Active Substance: ARIPIPRAZOLE
     Indication: MAJOR DEPRESSION
  6. ABILIFY [Interacting]
     Active Substance: ARIPIPRAZOLE
     Indication: OBSESSIVE-COMPULSIVE DISORDER
     Dosage: 2.5 MG, DAILY
     Route: 065
  7. ABILIFY [Interacting]
     Active Substance: ARIPIPRAZOLE
     Indication: MAJOR DEPRESSION
  8. ZOLOFT [Suspect]
     Active Substance: SERTRALINE HYDROCHLORIDE
     Indication: OBSESSIVE-COMPULSIVE DISORDER
     Dosage: 100 MG, DAILY
     Route: 065
  9. ZOLOFT [Suspect]
     Active Substance: SERTRALINE HYDROCHLORIDE
     Indication: OBSESSIVE-COMPULSIVE DISORDER
     Dosage: 200 MG, DAILY
     Route: 065

REACTIONS (3)
  - Drug ineffective [Recovered/Resolved]
  - Drug interaction [Recovered/Resolved]
  - Hypomania [Recovered/Resolved]
